FAERS Safety Report 7399823-9 (Version None)
Quarter: 2011Q2

REPORT INFORMATION
  Report Type: 
  Country: None (occurrence: None)
  Receive Date: 20110407
  Receipt Date: 20110323
  Transmission Date: 20111010
  Serious: No
  Sender: FDA-Public Use
  Company Number: US-JNJFOC-20110311840

PATIENT
  Sex: Female
  Weight: 97.98 kg

DRUGS (4)
  1. DURAGESIC [Suspect]
     Indication: ARTHRITIS
     Route: 062
  2. OMEPRAZOLE [Concomitant]
     Indication: GASTROOESOPHAGEAL REFLUX DISEASE
     Route: 048
  3. CYMBALTA [Concomitant]
     Indication: DEPRESSION
     Route: 048
  4. UNSPECIFIED GENERIC FENTANYL PATCH [Suspect]
     Indication: ARTHRITIS
     Route: 062

REACTIONS (5)
  - THERAPEUTIC RESPONSE UNEXPECTED WITH DRUG SUBSTITUTION [None]
  - VITAMIN D DEFICIENCY [None]
  - HYPERSOMNIA [None]
  - DRUG ADMINISTERED AT INAPPROPRIATE SITE [None]
  - PRODUCT QUALITY ISSUE [None]
